FAERS Safety Report 25622895 (Version 3)
Quarter: 2025Q3

REPORT INFORMATION
  Report Type: Report from Study
  Country: US (occurrence: US)
  Receive Date: 20250730
  Receipt Date: 20250813
  Transmission Date: 20251020
  Serious: Yes (Other)
  Sender: ALNYLAM PHARMACEUTICALS
  Company Number: US-ALNYLAM PHARMACEUTICALS, INC.-ALN-2025-004393

PATIENT

DRUGS (1)
  1. ONPATTRO [Suspect]
     Active Substance: PATISIRAN SODIUM
     Indication: Hereditary neuropathic amyloidosis
     Route: 065
     Dates: start: 20250206, end: 20250206

REACTIONS (4)
  - Cerebrovascular accident [Unknown]
  - Urinary incontinence [Unknown]
  - Therapy interrupted [Unknown]
  - Cardiac monitoring [Unknown]

NARRATIVE: CASE EVENT DATE: 20250701
